FAERS Safety Report 20382005 (Version 1)
Quarter: 2022Q1

REPORT INFORMATION
  Report Type: Spontaneous
  Country: US (occurrence: None)
  Receive Date: 20220126
  Receipt Date: 20220126
  Transmission Date: 20220423
  Serious: Yes (Hospitalization)
  Sender: FDA-Public Use
  Company Number: None

PATIENT
  Age: 82 Year
  Sex: Male
  Weight: 72 kg

DRUGS (9)
  1. CILGAVIMAB\TIXAGEVIMAB [Suspect]
     Active Substance: CILGAVIMAB\TIXAGEVIMAB
     Indication: COVID-19 prophylaxis
     Dosage: FREQUENCY : ONCE;?
     Route: 030
     Dates: start: 20220112, end: 20220112
  2. LEUPROLIDE [Concomitant]
     Active Substance: LEUPROLIDE
  3. ATORVASTATIN [Concomitant]
     Active Substance: ATORVASTATIN
  4. CALCIUM\VITAMIN D [Concomitant]
     Active Substance: CALCIUM\VITAMIN D
  5. VITAMINS [Concomitant]
     Active Substance: VITAMINS
  6. CHOLECALCIFEROL [Concomitant]
     Active Substance: CHOLECALCIFEROL
  7. IMBRUVICA [Concomitant]
     Active Substance: IBRUTINIB
  8. ASPIRIN [Concomitant]
     Active Substance: ASPIRIN
  9. OMEPRAZOLE [Concomitant]
     Active Substance: OMEPRAZOLE

REACTIONS (5)
  - Chest discomfort [None]
  - Dyspnoea [None]
  - Gastrooesophageal reflux disease [None]
  - Non-cardiac chest pain [None]
  - Oesophageal spasm [None]

NARRATIVE: CASE EVENT DATE: 20220124
